FAERS Safety Report 4722708-0 (Version None)
Quarter: 2005Q3

REPORT INFORMATION
  Report Type: 
  Country: None (occurrence: None)
  Receive Date: 20050720
  Receipt Date: 20050715
  Transmission Date: 20060218
  Serious: Yes (Life-Threatening, Other)
  Sender: FDA-Public Use
  Company Number: 2005US-00588

PATIENT
  Age: 83 Year
  Sex: Female

DRUGS (1)
  1. AMOXICILLIN CLAVULANATE POTASSIUM (CLAVULANIC ACID, AMOXICILLIN TRIHYD [Suspect]

REACTIONS (4)
  - ANAPHYLACTIC REACTION [None]
  - ELECTROMECHANICAL DISSOCIATION [None]
  - HYPOTENSION [None]
  - VENTRICULAR FIBRILLATION [None]
